FAERS Safety Report 8391594-2 (Version None)
Quarter: 2012Q2

REPORT INFORMATION
  Report Type: 
  Country: None (occurrence: None)
  Receive Date: 20120529
  Receipt Date: 20120525
  Transmission Date: 20120825
  Serious: Yes (Hospitalization)
  Sender: FDA-Public Use
  Company Number: PHHY2011CA13755

PATIENT
  Sex: Female

DRUGS (1)
  1. SANDOSTATIN LAR [Suspect]
     Indication: ANGIODYSPLASIA
     Dosage: 10 MG, QMO
     Route: 030
     Dates: start: 20100622

REACTIONS (8)
  - DIABETES MELLITUS [None]
  - ANAEMIA [None]
  - CARDIAC DISORDER [None]
  - INJECTION SITE HAEMORRHAGE [None]
  - BLINDNESS UNILATERAL [None]
  - HAEMOGLOBIN ABNORMAL [None]
  - CHEST PAIN [None]
  - BLOOD PRESSURE ABNORMAL [None]
